FAERS Safety Report 13172145 (Version 3)
Quarter: 2019Q1

REPORT INFORMATION
  Report Type: Spontaneous
  Country: US (occurrence: US)
  Receive Date: 20170131
  Receipt Date: 20190204
  Transmission Date: 20190417
  Serious: No
  Sender: FDA-Public Use
  Company Number: US-ABBVIE-16K-163-1662562-00

PATIENT

DRUGS (1)
  1. HUMIRA [Suspect]
     Active Substance: ADALIMUMAB
     Indication: PSORIASIS
     Route: 058

REACTIONS (7)
  - Skin irritation [Unknown]
  - Dry skin [Unknown]
  - Skin fissures [Unknown]
  - Sensitivity to weather change [Unknown]
  - Skin wrinkling [Unknown]
  - Psoriasis [Unknown]
  - Hyperaesthesia [Unknown]
